FAERS Safety Report 9584242 (Version 1)
Quarter: 2013Q4

REPORT INFORMATION
  Report Type: Spontaneous
  Country: US (occurrence: US)
  Receive Date: 20131002
  Receipt Date: 20131002
  Transmission Date: 20140711
  Serious: No
  Sender: FDA-Public Use
  Company Number: US-AMGEN-USASP2013052411

PATIENT
  Age: 36 Year
  Sex: Male

DRUGS (1)
  1. ENBREL [Suspect]
     Indication: POLYCHONDRITIS
     Dosage: UNK
     Route: 065
     Dates: start: 20130401

REACTIONS (1)
  - Arthralgia [Recovered/Resolved]
